FAERS Safety Report 4642678-3 (Version None)
Quarter: 2005Q2

REPORT INFORMATION
  Report Type: 
  Country: None (occurrence: None)
  Receive Date: 20050422
  Receipt Date: 20050412
  Transmission Date: 20051028
  Serious: Yes (Disabling)
  Sender: FDA-Public Use
  Company Number: GB-JNJFOC-20050403369

PATIENT
  Age: 34 Year
  Sex: Male

DRUGS (9)
  1. CONCERTA [Suspect]
     Route: 049
     Dates: start: 20050308, end: 20050318
  2. CONCERTA [Suspect]
     Indication: ATTENTION DEFICIT/HYPERACTIVITY DISORDER
     Route: 049
     Dates: start: 20050308, end: 20050318
  3. VALPROATE SODIUM [Concomitant]
     Route: 049
  4. CARBAMAZEPINE [Concomitant]
     Dosage: 400/600MG
     Route: 049
  5. ZUCLOPENTHIXOL [Concomitant]
     Indication: AGGRESSION
     Route: 049
  6. PROPRANOLOL [Concomitant]
     Indication: ANXIETY
     Route: 049
  7. PROPRANOLOL [Concomitant]
     Indication: AGITATION
     Route: 049
  8. ZOPICLONE [Concomitant]
     Route: 065
  9. LORAZEPAM [Concomitant]
     Route: 065

REACTIONS (3)
  - AGGRESSION [None]
  - FLIGHT OF IDEAS [None]
  - THINKING ABNORMAL [None]
